FAERS Safety Report 9424457 (Version 1)
Quarter: 2013Q3

REPORT INFORMATION
  Report Type: Spontaneous
  Country: JP (occurrence: JP)
  Receive Date: 20130729
  Receipt Date: 20130729
  Transmission Date: 20140515
  Serious: Yes (Death)
  Sender: FDA-Public Use
  Company Number: JP-COVIDIEN/TYCO HEALTHCARE/MALLINCKRODT-T201303851

PATIENT
  Age: 45 Year
  Sex: Female
  Weight: 49.7 kg

DRUGS (8)
  1. METHADONE [Suspect]
     Indication: CANCER PAIN
     Dosage: 45 MG, QD
     Route: 048
     Dates: start: 20130425, end: 20130501
  2. METHADONE [Suspect]
     Dosage: 60 MG, QD
     Route: 048
     Dates: start: 20130502, end: 20130505
  3. METHADONE [Suspect]
     Dosage: 45 MG, QD
     Route: 048
     Dates: start: 20130506, end: 20130506
  4. METHADONE [Suspect]
     Dosage: 30 MG, QD
     Route: 048
     Dates: start: 20130507, end: 20130507
  5. METHADONE [Suspect]
     Dosage: 15 MG, QD
     Route: 048
     Dates: start: 20130508, end: 20130508
  6. HYPEN                              /00613801/ [Concomitant]
     Indication: CANCER PAIN
     Dosage: 400 MG, UNK
     Route: 048
     Dates: end: 20130504
  7. NEXIUM                             /01479302/ [Concomitant]
     Dosage: 20 MG, UNK
     Route: 048
     Dates: end: 20130505
  8. LYRICA [Concomitant]
     Dosage: 300 MG, UNK
     Route: 048
     Dates: end: 20130429

REACTIONS (1)
  - Rectosigmoid cancer [Fatal]
